FAERS Safety Report 7815657-2 (Version None)
Quarter: 2011Q4

REPORT INFORMATION
  Report Type: 
  Country: None (occurrence: None)
  Receive Date: 20111014
  Receipt Date: 20111004
  Transmission Date: 20120403
  Serious: Yes (Hospitalization)
  Sender: FDA-Public Use
  Company Number: CS-NOVOPROD-335740

PATIENT

DRUGS (8)
  1. RISPERIDONE [Concomitant]
     Indication: EMOTIONAL DISORDER OF CHILDHOOD
  2. CLONAZEPAM [Concomitant]
     Indication: MENTAL DISORDER
     Dosage: 2 MG, UNK (3X1/4 TABLET)
     Route: 048
     Dates: start: 20110101
  3. CLONAZEPAM [Concomitant]
     Indication: ABNORMAL BEHAVIOUR
  4. RISPERIDONE [Concomitant]
     Indication: ABNORMAL BEHAVIOUR
  5. RISPERIDONE [Concomitant]
     Indication: MENTAL DISORDER
     Dosage: 3 DRPOS IN THE MORNING, 4 DROPS IN THE EVENING
     Route: 048
     Dates: start: 20110401
  6. NORDITROPIN [Suspect]
     Indication: GROWTH HORMONE DEFICIENCY
     Dosage: 0.77 MG, QD (EACH EVENING BEFORE BEDTIME)
     Route: 058
     Dates: start: 20110618
  7. MELIPRAMIN [Concomitant]
     Dosage: 1 G, UNK
     Route: 048
     Dates: start: 20101101
  8. CLONAZEPAM [Concomitant]
     Indication: EMOTIONAL DISORDER OF CHILDHOOD

REACTIONS (2)
  - BLOOD GLUCOSE INCREASED [None]
  - EATING DISORDER [None]
